FAERS Safety Report 6519799-3 (Version None)
Quarter: 2009Q4

REPORT INFORMATION
  Report Type: 
  Country: None (occurrence: None)
  Receive Date: 20091228
  Receipt Date: 20091228
  Transmission Date: 20100525
  Serious: Yes (Other)
  Sender: FDA-Public Use
  Company Number: None

PATIENT
  Age: 56 Year
  Sex: Male
  Weight: 77.7 kg

DRUGS (2)
  1. LEVAQUIN [Suspect]
     Indication: BRONCHITIS
     Dosage: 500 MG TABLE 1 X DAILY 047 ORAL
     Route: 048
     Dates: start: 20091219, end: 20091220
  2. PROAIR HFA [Concomitant]

REACTIONS (6)
  - ABDOMINAL DISTENSION [None]
  - BRONCHITIS [None]
  - DIARRHOEA [None]
  - FAECES DISCOLOURED [None]
  - FLATULENCE [None]
  - IMPAIRED WORK ABILITY [None]
